FAERS Safety Report 7335559-8 (Version None)
Quarter: 2011Q1

REPORT INFORMATION
  Report Type: 
  Country: None (occurrence: None)
  Receive Date: 20110307
  Receipt Date: 20110302
  Transmission Date: 20110831
  Serious: Yes (Other)
  Sender: FDA-Public Use
  Company Number: CH-PFIZER INC-2011046453

PATIENT
  Age: 33 Year
  Sex: Female

DRUGS (3)
  1. BELOC ZOK [Suspect]
     Indication: SECONDARY HYPERTENSION
     Dosage: 25 MG, 2X/DAY
     Dates: start: 20100101
  2. ZANIDIP [Suspect]
     Indication: SECONDARY HYPERTENSION
     Dosage: 10 MG, 1X/DAY
     Dates: start: 20100401
  3. ALDACTONE [Suspect]
     Indication: SECONDARY HYPERTENSION
     Dosage: UNK
     Dates: start: 20100701

REACTIONS (1)
  - ECLAMPSIA [None]
